FAERS Safety Report 18468976 (Version 2)
Quarter: 2020Q4

REPORT INFORMATION
  Report Type: Spontaneous
  Country: US (occurrence: US)
  Receive Date: 20201105
  Receipt Date: 20201106
  Transmission Date: 20210114
  Serious: No
  Sender: FDA-Public Use
  Company Number: US-BAYER-2020-236330

PATIENT
  Sex: Male

DRUGS (1)
  1. ALEVE [Suspect]
     Active Substance: NAPROXEN SODIUM
     Dosage: UNK
     Route: 048

REACTIONS (5)
  - Mouth swelling [Unknown]
  - Skin exfoliation [Unknown]
  - Pain of skin [Unknown]
  - Foreign body in mouth [Unknown]
  - Oral discomfort [Unknown]
